FAERS Safety Report 10884503 (Version 1)
Quarter: 2015Q1

REPORT INFORMATION
  Report Type: Spontaneous
  Country: US (occurrence: None)
  Receive Date: 20150227
  Receipt Date: 20150227
  Transmission Date: 20150721
  Serious: No
  Sender: FDA-Public Use
  Company Number: None

PATIENT

DRUGS (9)
  1. RANEXA ER, 500 MG [Concomitant]
  2. BIDIL TABLET [Concomitant]
  3. AMLODIPINE BESYLATE 5MG [Concomitant]
  4. CLOPIDOGREL [Concomitant]
     Active Substance: CLOPIDOGREL BISULFATE
  5. FUROSEMIDE. [Suspect]
     Active Substance: FUROSEMIDE
     Indication: CARDIAC FAILURE CONGESTIVE
     Dosage: 40 MG 1-2 PILLS DAILY OR PRN
     Route: 048
     Dates: start: 201312
  6. CARVEDILOL 12.5 MG [Concomitant]
     Active Substance: CARVEDILOL
  7. POTASSIUM CL ER 20 MEQ [Concomitant]
  8. NON-ACIDIC VITAMIN C POWDER 500 MG (CRYSTALLINE CALCIUM ASCORABTE) [Concomitant]
  9. LOW DOSE BAYER ASPIRIN 81 MG [Concomitant]

REACTIONS (1)
  - Gout [None]

NARRATIVE: CASE EVENT DATE: 20141215
